FAERS Safety Report 10012503 (Version 1)
Quarter: 2014Q1

REPORT INFORMATION
  Report Type: Report from Study
  Country: US (occurrence: US)
  Receive Date: 20140314
  Receipt Date: 20140314
  Transmission Date: 20141002
  Serious: Yes (Other)
  Sender: FDA-Public Use
  Company Number: PHEH2014US005161

PATIENT
  Sex: Male

DRUGS (1)
  1. EXFORGE [Suspect]
     Dosage: UNK (VALS UNKNOWN, AMLO 10MG)
     Route: 048

REACTIONS (2)
  - Diabetes mellitus [Unknown]
  - Hypertension [Unknown]
